FAERS Safety Report 17173763 (Version 1)
Quarter: 2019Q4

REPORT INFORMATION
  Report Type: Spontaneous
  Country: US (occurrence: US)
  Receive Date: 20191126
  Receipt Date: 20191126
  Transmission Date: 20200122
  Serious: Yes (Hospitalization)
  Sender: FDA-Public Use
  Company Number: None

PATIENT
  Age: 60 Year
  Sex: Female

DRUGS (1)
  1. NUCALA [Suspect]
     Active Substance: MEPOLIZUMAB
     Indication: PULMONARY EOSINOPHILIA
     Dosage: ?          OTHER FREQUENCY:EVERY 28 DAYS;?
     Route: 058
     Dates: start: 20191003

REACTIONS (1)
  - Chronic obstructive pulmonary disease [None]

NARRATIVE: CASE EVENT DATE: 201911
